FAERS Safety Report 18019197 (Version 1)
Quarter: 2020Q3

REPORT INFORMATION
  Report Type: Spontaneous
  Country: US (occurrence: US)
  Receive Date: 20200714
  Receipt Date: 20200714
  Transmission Date: 20201103
  Serious: No
  Sender: FDA-Public Use
  Company Number: US-AMGEN-USASP2020110515

PATIENT
  Age: 72 Year
  Sex: Female

DRUGS (3)
  1. EDARBYCLOR [Concomitant]
     Active Substance: AZILSARTAN KAMEDOXOMIL\CHLORTHALIDONE
     Dosage: 425 UNK
  2. EDARBYCLOR [Concomitant]
     Active Substance: AZILSARTAN KAMEDOXOMIL\CHLORTHALIDONE
     Indication: BLOOD PRESSURE MEASUREMENT
     Dosage: 400 MILLIGRAM
  3. PROLIA [Suspect]
     Active Substance: DENOSUMAB
     Indication: OSTEOPOROSIS
     Dosage: UNK
     Route: 065
     Dates: start: 201909

REACTIONS (4)
  - Pain [Unknown]
  - Hypoacusis [Recovering/Resolving]
  - Blood calcium increased [Unknown]
  - Headache [Unknown]

NARRATIVE: CASE EVENT DATE: 20200706
